FAERS Safety Report 5078153-4 (Version None)
Quarter: 2006Q3

REPORT INFORMATION
  Report Type: 
  Country: None (occurrence: None)
  Receive Date: 20060808
  Receipt Date: 20060802
  Transmission Date: 20061208
  Serious: Yes (Death)
  Sender: FDA-Public Use
  Company Number: BEWYE496503AUG06

PATIENT
  Age: 44 Year
  Sex: Female

DRUGS (6)
  1. GEMTUZUMAB OZOGAMICIN (GEMTUZUMAB OZOGAMICIN,  INJECTION) [Suspect]
     Dosage: 7 MG 1X PER 1 DAY
     Dates: start: 20060317, end: 20060317
  2. CYTARABINE [Suspect]
     Dosage: 140 MG 1X PER 1 DAY
     Dates: start: 20060311, end: 20060320
  3. IDARUBICIN HCL [Suspect]
     Dosage: 17 MG 1X PER 1 DAY
     Dates: start: 20060311, end: 20060315
  4. DIFLUCAN [Concomitant]
  5. CHLORPROMAZINE HCL [Concomitant]
  6. AMINOMIX (AMINO ACIDS NOS/ELECTROLYTES NOS/GLUCOSE) [Concomitant]

REACTIONS (2)
  - CEREBRAL HAEMORRHAGE [None]
  - COMA [None]
